FAERS Safety Report 14259147 (Version 1)
Quarter: 2017Q4

REPORT INFORMATION
  Report Type: Spontaneous
  Country: US (occurrence: US)
  Receive Date: 20171207
  Receipt Date: 20171207
  Transmission Date: 20180321
  Serious: Yes (Disabling)
  Sender: FDA-Public Use
  Company Number: None

PATIENT
  Age: 34 Year
  Sex: Female
  Weight: 55.35 kg

DRUGS (2)
  1. RETIN-A [Concomitant]
     Active Substance: TRETINOIN
  2. BOTOX [Suspect]
     Active Substance: ONABOTULINUMTOXINA

REACTIONS (11)
  - Back pain [None]
  - Abdominal pain upper [None]
  - Muscular weakness [None]
  - Musculoskeletal stiffness [None]
  - Dysphagia [None]
  - Dyspnoea [None]
  - Influenza like illness [None]
  - Oropharyngeal pain [None]
  - Nausea [None]
  - Decreased appetite [None]
  - Neck pain [None]

NARRATIVE: CASE EVENT DATE: 20171206
